FAERS Safety Report 8201957-3 (Version None)
Quarter: 2012Q1

REPORT INFORMATION
  Report Type: 
  Country: None (occurrence: None)
  Receive Date: 20120312
  Receipt Date: 20120305
  Transmission Date: 20120608
  Serious: Yes (Other)
  Sender: FDA-Public Use
  Company Number: PHEH2011US00510

PATIENT
  Sex: Male

DRUGS (1)
  1. AREDIA [Suspect]
     Indication: OSTEOPOROSIS

REACTIONS (3)
  - PROSTATE CANCER METASTATIC [None]
  - RETROPERITONEAL LYMPHADENOPATHY [None]
  - FOOT FRACTURE [None]
